FAERS Safety Report 6532070-9 (Version None)
Quarter: 2010Q1

REPORT INFORMATION
  Report Type: 
  Country: None (occurrence: None)
  Receive Date: 20100108
  Receipt Date: 20091230
  Transmission Date: 20100710
  Serious: Yes (Hospitalization)
  Sender: FDA-Public Use
  Company Number: GXKR2009GB13955

PATIENT
  Sex: Female

DRUGS (17)
  1. AMITRIPTYLINE (NGX) [Suspect]
     Dosage: MATERNAL DOSE: 25 MG/DAY
     Route: 064
  2. FLUOXETINE (NGX) [Suspect]
     Route: 064
  3. GABAPENTIN [Suspect]
     Dosage: MATERNAL DOSE: GRADUALLY INCREASED TO 1.8 G/DAY
     Route: 064
  4. MORPHINE SULFATE (NGX) [Suspect]
     Dosage: MATERNAL DOSE: 15 MG, PRN
     Route: 064
  5. TRAMADOL (NGX) [Suspect]
     Dosage: MATERNAL DOSE: 100 MG, Q6H
     Route: 064
  6. TRIFLUOPERAZINE (NGX) [Suspect]
     Route: 064
  7. HEPARIN [Concomitant]
     Route: 064
  8. IMMUNE GLOBULIN INTRAVENOUS (HUMAN) [Concomitant]
     Dosage: MATERNAL DOSE: 42 G, QD
     Route: 064
  9. ISOFLURANE [Concomitant]
     Route: 064
  10. METHYLPREDNISOLONE [Concomitant]
     Dosage: MATERNAL DOSE: 1 G, QD
     Route: 064
  11. NITROUS OXIDE [Concomitant]
     Route: 064
  12. PARACETAMOL [Concomitant]
     Dosage: MATERNAL DOSE: 1 G, Q6H
     Route: 064
  13. RANITIDINE [Concomitant]
     Dosage: MATERNAL DOSE: 150 MG, 1 TOTAL
  14. ROCURONIUM BROMIDE [Concomitant]
     Dosage: MATERNAL DOSE: 60 MG, 1/1 TOTAL
  15. SODIUM CITRATE [Concomitant]
     Dosage: MATERNAL DOSE: 30 MG, 1/1 TOTAL
     Route: 064
  16. THIOPENTAL SODIUM [Concomitant]
     Dosage: MATERNAL DOSE: 450 MG, 1/1 TOTAL
     Route: 064
  17. VITAMIN B-12 [Concomitant]
     Dosage: MATERNAL DOSE: 1 MG, QD
     Route: 064

REACTIONS (4)
  - DRUG EXPOSURE DURING PREGNANCY [None]
  - DRUG WITHDRAWAL SYNDROME [None]
  - INFANTILE APNOEIC ATTACK [None]
  - MECHANICAL VENTILATION [None]
